FAERS Safety Report 19070236 (Version 2)
Quarter: 2021Q2

REPORT INFORMATION
  Report Type: Report from Study
  Country: FR (occurrence: FR)
  Receive Date: 20210329
  Receipt Date: 20210412
  Transmission Date: 20210717
  Serious: Yes (Life-Threatening, Hospitalization)
  Sender: FDA-Public Use
  Company Number: FR-IMMUNOMEDICS, INC.-2020IMMU000056

PATIENT
  Age: 73 Year
  Sex: Female
  Weight: 60 kg

DRUGS (7)
  1. DAFALGAN [Concomitant]
     Active Substance: ACETAMINOPHEN
     Indication: PAIN PROPHYLAXIS
     Dosage: 1 G, PRN
     Route: 048
  2. COTAREG [Concomitant]
     Active Substance: HYDROCHLOROTHIAZIDE\VALSARTAN
     Indication: HYPERTENSION
     Dosage: 80/12.5 MG (1 TABLET IN MORNING), QD
     Route: 048
     Dates: start: 2017, end: 20200310
  3. SACITUZUMAB GOVITECAN. [Suspect]
     Active Substance: SACITUZUMAB GOVITECAN
     Indication: BREAST CANCER METASTATIC
     Dosage: 10 MG/KG DAYS 1 AND 8 OF 21?DAYS CYCLE.
     Route: 042
     Dates: start: 20200228, end: 20200228
  4. SACITUZUMAB GOVITECAN. [Suspect]
     Active Substance: SACITUZUMAB GOVITECAN
     Dosage: 10 MG/KG DAYS 1 AND 8 OF 21?DAYS CYCLE.
     Route: 042
     Dates: start: 20200306, end: 20200306
  5. ASPIRINE [Concomitant]
     Active Substance: ASPIRIN
     Indication: CARDIOVASCULAR EVENT PROPHYLAXIS
     Dosage: 100 MG, QD
     Route: 048
     Dates: start: 20190613
  6. CRESTOR [Concomitant]
     Active Substance: ROSUVASTATIN CALCIUM
     Indication: CARDIOVASCULAR EVENT PROPHYLAXIS
     Dosage: 10 MG, QD
     Route: 048
     Dates: start: 20090715
  7. LYRICA [Concomitant]
     Active Substance: PREGABALIN
     Indication: NEURALGIA
     Dosage: 25 MG, BID
     Route: 048
     Dates: start: 20190613

REACTIONS (2)
  - Neutropenic colitis [Recovered/Resolved]
  - Anaemia [Recovered/Resolved]

NARRATIVE: CASE EVENT DATE: 20200314
